FAERS Safety Report 9753082 (Version 1)
Quarter: 2013Q4

REPORT INFORMATION
  Report Type: Spontaneous
  Country: US (occurrence: US)
  Receive Date: 20131213
  Receipt Date: 20131213
  Transmission Date: 20140711
  Serious: Yes (Other)
  Sender: FDA-Public Use
  Company Number: US-BAYER-2013-151170

PATIENT
  Age: 44 Year
  Sex: Female
  Weight: 53.52 kg

DRUGS (12)
  1. YAZ [Suspect]
  2. YASMIN [Suspect]
  3. AZITHROMYCIN [Concomitant]
  4. PROZAC [Concomitant]
  5. CYMBALTA [Concomitant]
  6. FLEXERIL [Concomitant]
  7. IBUPROFEN [Concomitant]
  8. KENALOG [Concomitant]
  9. LIDOCAINE [Concomitant]
  10. TOPAMAX [Concomitant]
  11. SKELAXIN [Concomitant]
  12. ULTRAM [Concomitant]

REACTIONS (2)
  - Thrombophlebitis superficial [None]
  - Thrombophlebitis superficial [None]
